FAERS Safety Report 23170485 (Version 1)
Quarter: 2023Q4

REPORT INFORMATION
  Report Type: Report from Study
  Country: IN (occurrence: IN)
  Receive Date: 20231110
  Receipt Date: 20231110
  Transmission Date: 20240109
  Serious: Yes (Other)
  Sender: FDA-Public Use
  Company Number: IN-002147023-NVSC2023IN106524

PATIENT
  Age: 48 Year
  Sex: Female

DRUGS (2)
  1. RIBOCICLIB [Suspect]
     Active Substance: RIBOCICLIB
     Indication: Breast cancer metastatic
     Dosage: 600 MG, QD FOR 21 DAYS AND 7 DAYS OFF
     Route: 065
     Dates: start: 20220524
  2. LETROZOLE [Concomitant]
     Active Substance: LETROZOLE
     Indication: Breast cancer metastatic
     Dosage: 2.5 MG, QD
     Route: 048
     Dates: start: 20230523

REACTIONS (11)
  - Platelet count decreased [Unknown]
  - Pulmonary valve stenosis [Unknown]
  - White blood cell count decreased [Unknown]
  - Red blood cell count decreased [Unknown]
  - Dizziness [Recovered/Resolved]
  - Rash [Recovered/Resolved]
  - Neutrophil count decreased [Unknown]
  - Haemoglobin decreased [Unknown]
  - Rhinorrhoea [Recovered/Resolved]
  - Physical examination abnormal [Unknown]
  - Toothache [Unknown]

NARRATIVE: CASE EVENT DATE: 20220524
